FAERS Safety Report 18801711 (Version 2)
Quarter: 2021Q1

REPORT INFORMATION
  Report Type: Spontaneous
  Country: US (occurrence: US)
  Receive Date: 20210128
  Receipt Date: 20210201
  Transmission Date: 20210419
  Serious: Yes (Death)
  Sender: FDA-Public Use
  Company Number: US-SHIONOGI, INC-2020000587

PATIENT
  Age: 42 Year
  Sex: Female

DRUGS (3)
  1. FETROJA [Suspect]
     Active Substance: CEFIDEROCOL SULFATE TOSYLATE
     Indication: OFF LABEL USE
     Dosage: 1.5 G, 1 PER 8 HOUR FDC
     Route: 065
     Dates: start: 20200823, end: 20200824
  2. FETROJA [Suspect]
     Active Substance: CEFIDEROCOL SULFATE TOSYLATE
     Indication: PSEUDOMONAL BACTERAEMIA
     Dosage: 1 G, 1 PER 8 HOUR FDC
     Route: 065
     Dates: start: 20200818, end: 20200823
  3. FETROJA [Suspect]
     Active Substance: CEFIDEROCOL SULFATE TOSYLATE
     Dosage: 1 G, 1 PER 8 HOUR FDC
     Route: 065
     Dates: start: 20200901, end: 20200903

REACTIONS (4)
  - Off label use [Unknown]
  - Acute myeloid leukaemia [Fatal]
  - Sepsis [Fatal]
  - Organ failure [Fatal]

NARRATIVE: CASE EVENT DATE: 2020
